FAERS Safety Report 7684048-X (Version None)
Quarter: 2011Q3

REPORT INFORMATION
  Report Type: 
  Country: None (occurrence: None)
  Receive Date: 20110815
  Receipt Date: 20110808
  Transmission Date: 20111222
  Serious: Yes (Life-Threatening, Hospitalization, Other)
  Sender: FDA-Public Use
  Company Number: US-PFIZER INC-2011156076

PATIENT
  Sex: Male

DRUGS (3)
  1. XANAX [Suspect]
     Dosage: 1 BOTTLE OF THIRTY 1-MG
     Dates: start: 20110629
  2. INVESTIGATIONAL DRUG [Suspect]
     Indication: SMALL CELL LUNG CANCER STAGE UNSPECIFIED
     Dosage: 120 MG, DAILY
     Route: 048
     Dates: start: 20110404, end: 20110410
  3. INVESTIGATIONAL DRUG [Suspect]
     Dosage: 60 MG DAILY
     Route: 048
     Dates: start: 20110411, end: 20110628

REACTIONS (2)
  - INTENTIONAL OVERDOSE [None]
  - SUICIDE ATTEMPT [None]
